FAERS Safety Report 5041886-X (Version None)
Quarter: 2006Q2

REPORT INFORMATION
  Report Type: 
  Country: None (occurrence: None)
  Receive Date: 20060630
  Receipt Date: 20060629
  Transmission Date: 20061013
  Serious: Yes (Congenital Anomaly)
  Sender: FDA-Public Use
  Company Number: 007678

PATIENT
  Age: 25 Year
  Sex: Female
  Weight: 109.8 kg

DRUGS (3)
  1. DIDANOSINE [Suspect]
     Dosage: 250 MG, QD, ORAL
     Route: 048
     Dates: start: 20051101
  2. TENOFOVIR (TENOFOVIR) [Suspect]
     Dosage: 300 MG, QD, ORAL
     Route: 048
     Dates: start: 20051101
  3. NELFINAVIR (NELFINAVIR) [Suspect]
     Dosage: 2500 MG, QD, ORAL
     Route: 048
     Dates: start: 20051101

REACTIONS (2)
  - CONGENITAL TERATOMA [None]
  - DRUG EXPOSURE DURING PREGNANCY [None]
